FAERS Safety Report 13880314 (Version 1)
Quarter: 2017Q3

REPORT INFORMATION
  Report Type: Spontaneous
  Country: US (occurrence: US)
  Receive Date: 20170818
  Receipt Date: 20170818
  Transmission Date: 20171127
  Serious: No
  Sender: FDA-Public Use
  Company Number: US-ASTELLAS-2017US006328

PATIENT
  Age: 56 Year
  Sex: Female

DRUGS (1)
  1. AMBISOME [Suspect]
     Active Substance: AMPHOTERICIN B
     Indication: HISTOPLASMOSIS
     Dosage: 222 MG, ONCE DAILY (EVERY 24 HOURS) IN A D5 250 BAG
     Route: 042
     Dates: start: 20170214, end: 20170225

REACTIONS (1)
  - Wrong technique in product usage process [Unknown]
